FAERS Safety Report 18320272 (Version 1)
Quarter: 2020Q3

REPORT INFORMATION
  Report Type: Spontaneous
  Country: SE (occurrence: SE)
  Receive Date: 20200929
  Receipt Date: 20200929
  Transmission Date: 20201103
  Serious: Yes (Life-Threatening, Hospitalization, Other)
  Sender: FDA-Public Use
  Company Number: SE-LUPIN PHARMACEUTICALS INC.-2020-06566

PATIENT
  Age: 70 Year
  Sex: Female

DRUGS (7)
  1. FENTANYL. [Suspect]
     Active Substance: FENTANYL
     Indication: PRODUCT USED FOR UNKNOWN INDICATION
     Dosage: UNK
     Route: 065
  2. OXAZEPAM. [Suspect]
     Active Substance: OXAZEPAM
     Indication: PRODUCT USED FOR UNKNOWN INDICATION
     Dosage: UNK
     Route: 065
  3. METHYLTHIONINIUM CHLORIDE [Suspect]
     Active Substance: METHYLENE BLUE
     Indication: SHOCK
     Dosage: UNK?2MG/KG FOLLOWED BY A CONTINUOUS INFUSION OF 0.5MG/KG/H
     Route: 065
  4. PROPIOMAZINE [Suspect]
     Active Substance: PROPIOMAZINE
     Indication: PRODUCT USED FOR UNKNOWN INDICATION
     Dosage: UNK
     Route: 065
  5. AMLODIPINE [Suspect]
     Active Substance: AMLODIPINE BESYLATE
     Indication: PRODUCT USED FOR UNKNOWN INDICATION
     Dosage: UNK
     Route: 065
  6. CITALOPRAM [Suspect]
     Active Substance: CITALOPRAM HYDROBROMIDE
     Indication: PRODUCT USED FOR UNKNOWN INDICATION
     Dosage: UNK
     Route: 048
  7. CANDESARTAN CILEXETIL. [Suspect]
     Active Substance: CANDESARTAN CILEXETIL
     Indication: PRODUCT USED FOR UNKNOWN INDICATION
     Dosage: UNK
     Route: 065

REACTIONS (5)
  - Shock [Recovered/Resolved]
  - Serotonin syndrome [Recovered/Resolved]
  - Overdose [Unknown]
  - Non-cardiogenic pulmonary oedema [Recovered/Resolved]
  - Haemodynamic instability [Recovered/Resolved]
